FAERS Safety Report 8488417-X (Version None)
Quarter: 2012Q3

REPORT INFORMATION
  Report Type: 
  Country: None (occurrence: None)
  Receive Date: 20120705
  Receipt Date: 20120629
  Transmission Date: 20120928
  Serious: Yes (Hospitalization)
  Sender: FDA-Public Use
  Company Number: IT-B.I. PHARMACEUTICALS,INC./RIDGEFIELD-2012-EU-03398BY

PATIENT
  Sex: Male

DRUGS (10)
  1. DIABREZIDE [Suspect]
     Dosage: 240 MG
     Route: 048
     Dates: start: 20120624, end: 20120627
  2. NORVASC [Concomitant]
  3. CARDURA [Concomitant]
     Dosage: MODIFIED-RELEASE TABLET
  4. TELMISARTAN [Suspect]
     Indication: HYPERTENSION
     Dosage: 40 MG
     Route: 048
     Dates: start: 20090101, end: 20120623
  5. ASPIRIN [Concomitant]
     Dosage: COATED TABLET
  6. TELMISARTAN [Suspect]
     Route: 048
  7. RAMIPRIL [Concomitant]
  8. TELMISARTAN [Suspect]
     Dosage: 80 MG
     Route: 048
     Dates: start: 20120624, end: 20120627
  9. RAMIPRIL [Concomitant]
  10. DIABREZIDE [Suspect]
     Indication: TYPE 2 DIABETES MELLITUS
     Dosage: 120 MG
     Route: 048
     Dates: start: 20090101

REACTIONS (2)
  - CONFUSIONAL STATE [None]
  - HYPOGLYCAEMIA [None]
